FAERS Safety Report 18657797 (Version 3)
Quarter: 2021Q1

REPORT INFORMATION
  Report Type: Spontaneous
  Country: US (occurrence: US)
  Receive Date: 20201223
  Receipt Date: 20210310
  Transmission Date: 20210419
  Serious: Yes (Other)
  Sender: FDA-Public Use
  Company Number: US-JNJFOC-20201235971

PATIENT
  Age: 24 Year
  Sex: Male
  Weight: 113.5 kg

DRUGS (4)
  1. INVEGA SUSTENNA [Suspect]
     Active Substance: PALIPERIDONE PALMITATE
     Indication: SUBSTANCE-INDUCED PSYCHOTIC DISORDER
     Route: 030
     Dates: start: 20200807
  2. INVEGA [Suspect]
     Active Substance: PALIPERIDONE
     Indication: PRODUCT USED FOR UNKNOWN INDICATION
     Route: 048
     Dates: end: 20200921
  3. INVEGA SUSTENNA [Suspect]
     Active Substance: PALIPERIDONE PALMITATE
  4. INVEGA SUSTENNA [Suspect]
     Active Substance: PALIPERIDONE PALMITATE

REACTIONS (15)
  - Feeling abnormal [Unknown]
  - Asthenia [Unknown]
  - Off label use [Unknown]
  - Lethargy [Unknown]
  - Emotional poverty [Not Recovered/Not Resolved]
  - Dysphonia [Unknown]
  - Erectile dysfunction [Not Recovered/Not Resolved]
  - Cognitive disorder [Unknown]
  - Headache [Unknown]
  - Muscular weakness [Unknown]
  - Spermatozoa abnormal [Not Recovered/Not Resolved]
  - Product use in unapproved indication [Unknown]
  - Anxiety [Unknown]
  - Memory impairment [Unknown]
  - Chest pain [Unknown]

NARRATIVE: CASE EVENT DATE: 202011
